FAERS Safety Report 6179889-4 (Version None)
Quarter: 2009Q2

REPORT INFORMATION
  Report Type: 
  Country: None (occurrence: None)
  Receive Date: 20090505
  Receipt Date: 20090204
  Transmission Date: 20091009
  Serious: No
  Sender: FDA-Public Use
  Company Number: US-TYCO HEALTHCARE/MALLINCKRODT-T200900209

PATIENT
  Sex: Male
  Weight: 108.84 kg

DRUGS (4)
  1. OXYCODONE HCL EXTENDED-RELEASE [Suspect]
     Indication: BACK PAIN
     Dosage: 3 TABS, TID
     Route: 048
     Dates: start: 20090129
  2. OXYCODONE HCL EXTENDED-RELEASE [Suspect]
     Indication: PAIN IN EXTREMITY
  3. VALIUM [Concomitant]
     Indication: SLEEP DISORDER
     Dosage: 10 MG, HS
     Route: 048
     Dates: start: 20080801
  4. OXYCODONE [Concomitant]
     Indication: BREAKTHROUGH PAIN
     Dosage: 5 MG, 8 TIMES/DAY, PRN
     Route: 048
     Dates: start: 20081101

REACTIONS (8)
  - DRUG EFFECT DECREASED [None]
  - DYSPNOEA [None]
  - DYSURIA [None]
  - EYE PAIN [None]
  - FEELING JITTERY [None]
  - HEADACHE [None]
  - INSOMNIA [None]
  - PALPITATIONS [None]
